FAERS Safety Report 22069660 (Version 1)
Quarter: 2023Q1

REPORT INFORMATION
  Report Type: Spontaneous
  Country: CA (occurrence: CA)
  Receive Date: 20230307
  Receipt Date: 20230307
  Transmission Date: 20230418
  Serious: Yes (Death)
  Sender: FDA-Public Use
  Company Number: CA-PFIZER INC-2020353239

PATIENT
  Age: 77 Year
  Sex: Male

DRUGS (3)
  1. LORBRENA [Suspect]
     Active Substance: LORLATINIB
     Dosage: 100 MG, DAILY
     Route: 048
     Dates: start: 20200916
  2. OXYCODONE [Concomitant]
     Active Substance: OXYCODONE
     Dosage: UNK
  3. TAMSULOSIN [Concomitant]
     Active Substance: TAMSULOSIN
     Dosage: UNK

REACTIONS (14)
  - Death [Fatal]
  - Diarrhoea [Unknown]
  - Flatulence [Unknown]
  - Dysgeusia [Unknown]
  - Parosmia [Unknown]
  - Pain in extremity [Unknown]
  - Neoplasm progression [Unknown]
  - Gait disturbance [Unknown]
  - Impaired quality of life [Unknown]
  - Pain [Unknown]
  - Discomfort [Unknown]
  - Loss of personal independence in daily activities [Unknown]
  - Depression [Unknown]
  - Anxiety [Unknown]
